FAERS Safety Report 10547750 (Version 1)
Quarter: 2014Q4

REPORT INFORMATION
  Report Type: Spontaneous
  Country: US (occurrence: None)
  Receive Date: 20141024
  Receipt Date: 20141024
  Transmission Date: 20150529
  Serious: No
  Sender: FDA-Public Use
  Company Number: None

PATIENT
  Age: 66 Year
  Sex: Male
  Weight: 65.77 kg

DRUGS (2)
  1. CIALIS [Suspect]
     Active Substance: TADALAFIL
     Indication: ERECTILE DYSFUNCTION
     Dosage: 1X 5G DAILY
     Route: 048
     Dates: start: 20141019, end: 20141024
  2. CIALIS [Suspect]
     Active Substance: TADALAFIL
     Indication: DYSURIA
     Dosage: 1X 5G DAILY
     Route: 048
     Dates: start: 20141019, end: 20141024

REACTIONS (4)
  - Drug intolerance [None]
  - Dyspepsia [None]
  - Myalgia [None]
  - Back pain [None]

NARRATIVE: CASE EVENT DATE: 20141020
